FAERS Safety Report 5504297-6 (Version None)
Quarter: 2007Q4

REPORT INFORMATION
  Report Type: 
  Country: None (occurrence: None)
  Receive Date: 20071030
  Receipt Date: 20071015
  Transmission Date: 20080405
  Serious: Yes (Disabling)
  Sender: FDA-Public Use
  Company Number: 161394ISR

PATIENT
  Age: 63 Year
  Sex: Female

DRUGS (8)
  1. PACLITAXEL [Suspect]
     Indication: OVARIAN EPITHELIAL CANCER
     Dosage: 270 MG, 1 IN 3 WK), INTRAVENOUS
     Route: 042
     Dates: start: 20070426, end: 20070724
  2. FLUCONAZOLE [Suspect]
     Indication: MUCOSAL INFLAMMATION
     Dosage: ORAL
     Route: 048
     Dates: start: 20070426
  3. CARBOPLATIN [Concomitant]
  4. DICYCLOMINE HCL [Concomitant]
  5. METOCLOPRAMIDE [Concomitant]
  6. DOXYLAMINE [Concomitant]
  7. PYRIDOXINE [Concomitant]
  8. DOSULEPIN [Concomitant]

REACTIONS (2)
  - DRUG INTERACTION [None]
  - TOXIC SKIN ERUPTION [None]
